FAERS Safety Report 11269663 (Version 1)
Quarter: 2015Q3

REPORT INFORMATION
  Report Type: Spontaneous
  Country: US (occurrence: US)
  Receive Date: 20150714
  Receipt Date: 20150714
  Transmission Date: 20151125
  Serious: Yes (Life-Threatening, Hospitalization)
  Sender: FDA-Public Use
  Company Number: US-PFIZER INC-2015230960

PATIENT
  Age: 20 Year
  Sex: Male

DRUGS (1)
  1. ZOSYN [Suspect]
     Active Substance: PIPERACILLIN SODIUM\TAZOBACTAM SODIUM
     Indication: LUNG INFECTION
     Dosage: 3 G PIPERACILLIN-375 MG TAZOBACTAM (ZOSYN 3.375 G) , EVERY 6 HOURS.
     Route: 042

REACTIONS (1)
  - Autoimmune haemolytic anaemia [Recovered/Resolved]
